FAERS Safety Report 5836742-0 (Version None)
Quarter: 2008Q3

REPORT INFORMATION
  Report Type: 
  Country: None (occurrence: None)
  Receive Date: 20080805
  Receipt Date: 20080729
  Transmission Date: 20090109
  Serious: Yes (Hospitalization, Other)
  Sender: FDA-Public Use
  Company Number: 2008AL003443

PATIENT
  Age: 85 Year
  Sex: Female
  Weight: 69.4003 kg

DRUGS (6)
  1. DIGOXIN [Suspect]
     Indication: CARDIAC FAILURE CONGESTIVE
     Dosage: 0.25MG DAILY PO
     Route: 048
     Dates: start: 20070101, end: 20080101
  2. ATENOLOL [Concomitant]
  3. SYNTHROID [Concomitant]
  4. CARTIA XT [Concomitant]
  5. COUMADIN [Concomitant]
  6. ALBUTEROL [Concomitant]

REACTIONS (4)
  - DYSPNOEA [None]
  - EYE DISORDER [None]
  - GASTROINTESTINAL DISORDER [None]
  - THERAPEUTIC AGENT TOXICITY [None]
